FAERS Safety Report 7255659-0 (Version None)
Quarter: 2011Q1

REPORT INFORMATION
  Report Type: 
  Country: None (occurrence: None)
  Receive Date: 20110129
  Receipt Date: 20100826
  Transmission Date: 20110831
  Serious: No
  Sender: FDA-Public Use
  Company Number: US-ABBOTT-10P-163-0666843-00

PATIENT
  Age: 35 Year
  Sex: Male

DRUGS (3)
  1. CORTEF [Concomitant]
     Indication: PRODUCT USED FOR UNKNOWN INDICATION
  2. HUMIRA [Suspect]
     Indication: COLITIS ULCERATIVE
     Dosage: STILL TRYING TO GET STARTER DOSE IN OF 80 MG
     Dates: start: 20100809, end: 20100823
  3. COLOZOFF [Concomitant]
     Indication: PRODUCT USED FOR UNKNOWN INDICATION

REACTIONS (2)
  - NASOPHARYNGITIS [None]
  - OROPHARYNGEAL PAIN [None]
